FAERS Safety Report 9343834 (Version 2)
Quarter: 2013Q2

REPORT INFORMATION
  Report Type: Spontaneous
  Country: BR (occurrence: None)
  Receive Date: 20130610
  Receipt Date: 20130614
  Transmission Date: 20140414
  Serious: Yes (Hospitalization, Other)
  Sender: FDA-Public Use
  Company Number: SYM-2013-04463

PATIENT
  Age: 73 Year
  Sex: Female
  Weight: 60 kg

DRUGS (2)
  1. TIMOPTOL [Suspect]
     Indication: INTRAOCULAR PRESSURE INCREASED
     Dosage: ONE DROP IN EACH EYE, Q12H
     Dates: start: 2005
  2. CARDIZEM [Concomitant]

REACTIONS (13)
  - Dry eye [None]
  - Headache [None]
  - Depression [None]
  - Somnolence [None]
  - Ocular hyperaemia [None]
  - Eye irritation [None]
  - Condition aggravated [None]
  - Sleep disorder [None]
  - Blister [None]
  - Hysterectomy [None]
  - Salpingo-oophorectomy bilateral [None]
  - Bladder disorder [None]
  - Product container seal issue [None]
